FAERS Safety Report 23983155 (Version 1)
Quarter: 2024Q2

REPORT INFORMATION
  Report Type: Spontaneous
  Country: US (occurrence: US)
  Receive Date: 20240617
  Receipt Date: 20240617
  Transmission Date: 20240715
  Serious: Yes (Other)
  Sender: FDA-Public Use
  Company Number: US-BRISTOL-MYERS SQUIBB COMPANY-2024-091540

PATIENT
  Age: 61 Year
  Sex: Male

DRUGS (2)
  1. THALOMID [Suspect]
     Active Substance: THALIDOMIDE
     Indication: Gastric antral vascular ectasia
     Dates: start: 20240417
  2. THALOMID [Suspect]
     Active Substance: THALIDOMIDE
     Indication: Iron deficiency anaemia

REACTIONS (15)
  - Fatigue [Unknown]
  - Contusion [Unknown]
  - Asthenia [Unknown]
  - Myalgia [Unknown]
  - Hypotension [Unknown]
  - Haematemesis [Unknown]
  - Restlessness [Unknown]
  - Septic shock [Unknown]
  - Thrombocytopenia [Unknown]
  - Tooth disorder [Unknown]
  - Cryptogenic cirrhosis [Unknown]
  - Diabetes mellitus [Unknown]
  - Renal disorder [Unknown]
  - Off label use [Unknown]
  - Syncope [Unknown]

NARRATIVE: CASE EVENT DATE: 20240531
